FAERS Safety Report 12115231 (Version 1)
Quarter: 2016Q1

REPORT INFORMATION
  Report Type: Spontaneous
  Country: RU (occurrence: RU)
  Receive Date: 20160225
  Receipt Date: 20160225
  Transmission Date: 20160526
  Serious: Yes (Other)
  Sender: FDA-Public Use
  Company Number: RU-FRESENIUS KABI-FK201600961

PATIENT

DRUGS (6)
  1. BLEOMYCIN [Suspect]
     Active Substance: BLEOMYCIN SULFATE
     Indication: FOETAL EXPOSURE DURING PREGNANCY
     Route: 065
  2. DOXORUBICIN (MANUFACTURER UNKNOWN) [Suspect]
     Active Substance: DOXORUBICIN
     Indication: FOETAL EXPOSURE DURING PREGNANCY
     Route: 065
  3. CYCLOPHOSPHAMIDE (MANUFACTURER UNKNOWN) [Suspect]
     Active Substance: CYCLOPHOSPHAMIDE
     Indication: FOETAL EXPOSURE DURING PREGNANCY
     Route: 065
  4. PREDNISONE. [Suspect]
     Active Substance: PREDNISONE
     Indication: FOETAL EXPOSURE DURING PREGNANCY
     Route: 065
  5. VINCRISTINE (MANUFACTURER UNKNOWN) [Suspect]
     Active Substance: VINCRISTINE
     Indication: FOETAL EXPOSURE DURING PREGNANCY
     Route: 065
  6. ETOPOSIDE (MANUFACTURER UNKNOWN) [Suspect]
     Active Substance: ETOPOSIDE
     Indication: FOETAL EXPOSURE DURING PREGNANCY
     Route: 065

REACTIONS (2)
  - Vena cava thrombosis [Unknown]
  - Foetal exposure during pregnancy [Unknown]
